FAERS Safety Report 10288888 (Version 3)
Quarter: 2015Q1

REPORT INFORMATION
  Report Type: Spontaneous
  Country: US (occurrence: US)
  Receive Date: 20140709
  Receipt Date: 20150227
  Transmission Date: 20150720
  Serious: Yes (Hospitalization, Other)
  Sender: FDA-Public Use
  Company Number: US-GILEAD-2014-0108036

PATIENT
  Age: 71 Year
  Sex: Female

DRUGS (4)
  1. LETAIRIS [Suspect]
     Active Substance: AMBRISENTAN
     Indication: SCLERODERMA
  2. REVATIO [Concomitant]
     Active Substance: SILDENAFIL CITRATE
  3. LETAIRIS [Suspect]
     Active Substance: AMBRISENTAN
     Indication: PULMONARY HYPERTENSION
     Dosage: 10 MG, QD
     Route: 065
     Dates: start: 20130822
  4. LETAIRIS [Suspect]
     Active Substance: AMBRISENTAN
     Indication: EMPHYSEMA

REACTIONS (4)
  - Blindness [Unknown]
  - Spinal compression fracture [Unknown]
  - Dyspnoea [Unknown]
  - Blindness [Unknown]

NARRATIVE: CASE EVENT DATE: 201406
